FAERS Safety Report 20554696 (Version 1)
Quarter: 2022Q1

REPORT INFORMATION
  Report Type: Report from Study
  Country: CN (occurrence: CN)
  Receive Date: 20220304
  Receipt Date: 20220304
  Transmission Date: 20220423
  Serious: Yes (Hospitalization)
  Sender: FDA-Public Use
  Company Number: CN-JNJFOC-20220301621

PATIENT
  Age: 69 Year
  Sex: Male
  Weight: 76.5 kg

DRUGS (7)
  1. AMIVANTAMAB [Suspect]
     Active Substance: AMIVANTAMAB
     Indication: Non-small cell lung cancer
     Route: 042
     Dates: start: 20211216, end: 20220223
  2. MINOCYCLINE HYDROCHLORIDE [Concomitant]
     Active Substance: MINOCYCLINE HYDROCHLORIDE
     Indication: Rash
     Route: 048
     Dates: start: 20211216
  3. MINOCYCLINE HYDROCHLORIDE [Concomitant]
     Active Substance: MINOCYCLINE HYDROCHLORIDE
     Route: 048
     Dates: start: 20220127
  4. NIFEDIPINE [Concomitant]
     Active Substance: NIFEDIPINE
     Indication: Hypertension
     Route: 048
     Dates: start: 20220209
  5. MUPIROCIN [Concomitant]
     Active Substance: MUPIROCIN
     Indication: Paronychia
     Route: 050
     Dates: start: 20220210
  6. DESONIDE [Concomitant]
     Active Substance: DESONIDE
     Indication: Rash
     Route: 050
     Dates: start: 20220210
  7. OXYGEN [Concomitant]
     Active Substance: OXYGEN
     Indication: Snoring
     Dosage: LOW FLOW
     Route: 055
     Dates: start: 20220210, end: 20220210

REACTIONS (1)
  - Pulmonary embolism [Not Recovered/Not Resolved]

NARRATIVE: CASE EVENT DATE: 20220223
